FAERS Safety Report 20578255 (Version 1)
Quarter: 2022Q1

REPORT INFORMATION
  Report Type: Spontaneous
  Country: US (occurrence: None)
  Receive Date: 20220310
  Receipt Date: 20220310
  Transmission Date: 20220423
  Serious: No
  Sender: FDA-Public Use
  Company Number: None

PATIENT
  Age: 63 Year
  Sex: Male
  Weight: 93.6 kg

DRUGS (13)
  1. REPATHA [Suspect]
     Active Substance: EVOLOCUMAB
     Indication: Blood cholesterol increased
  2. REPATHA [Suspect]
     Active Substance: EVOLOCUMAB
     Indication: Blood triglycerides increased
  3. PRALUENT [Concomitant]
     Active Substance: ALIROCUMAB
  4. XANAX [Concomitant]
     Active Substance: ALPRAZOLAM
  5. NORVASC [Concomitant]
     Active Substance: AMLODIPINE BESYLATE
  6. LOPRESSOR [Concomitant]
     Active Substance: METOPROLOL TARTRATE
  7. SINGULAIR [Concomitant]
     Active Substance: MONTELUKAST SODIUM
  8. LOVAZA [Concomitant]
     Active Substance: OMEGA-3-ACID ETHYL ESTERS
  9. ASPIRIN [Concomitant]
     Active Substance: ASPIRIN
  10. MINERALS\VITAMINS [Concomitant]
     Active Substance: MINERALS\VITAMINS
  11. ZYRTEC [Concomitant]
     Active Substance: CETIRIZINE HYDROCHLORIDE
  12. MUCINEX [Concomitant]
     Active Substance: GUAIFENESIN
  13. BERBERINE [Concomitant]
     Active Substance: BERBERINE

REACTIONS (13)
  - Oropharyngeal pain [None]
  - Weight decreased [None]
  - Headache [None]
  - Nausea [None]
  - Abdominal pain upper [None]
  - Paraesthesia [None]
  - Injection site oedema [None]
  - Eye disorder [None]
  - Paraesthesia [None]
  - Injection site pain [None]
  - Hypokinesia [None]
  - Dysphagia [None]
  - Asthenia [None]

NARRATIVE: CASE EVENT DATE: 20220305
